FAERS Safety Report 6571532-5 (Version None)
Quarter: 2010Q1

REPORT INFORMATION
  Report Type: 
  Country: None (occurrence: None)
  Receive Date: 20100205
  Receipt Date: 20100125
  Transmission Date: 20100710
  Serious: Yes (Death)
  Sender: FDA-Public Use
  Company Number: GB-JNJFOC-20080802587

PATIENT
  Age: 5 Year
  Sex: Female

DRUGS (3)
  1. PARACETAMOL [Suspect]
     Route: 048
  2. PARACETAMOL [Suspect]
     Indication: VIRAL INFECTION
     Dosage: 2 PILLS (325-500 MG) MULTIPLE TIMES PER DAY FOR SEVERAL DAYS; ALLEGED MAXIMUM DOSE NOT REPORTED
     Route: 048
  3. BISMUTH SUBSALICYLATE IN OIL INJ [Concomitant]
     Route: 048

REACTIONS (8)
  - ACTIVATED PARTIAL THROMBOPLASTIN TIME PROLONGED [None]
  - DRUG TOXICITY [None]
  - HEPATIC NECROSIS [None]
  - INCORRECT DOSE ADMINISTERED [None]
  - INTRACRANIAL PRESSURE INCREASED [None]
  - OVERDOSE [None]
  - PROTHROMBIN TIME PROLONGED [None]
  - WRONG DRUG ADMINISTERED [None]
